FAERS Safety Report 10969938 (Version 1)
Quarter: 2015Q1

REPORT INFORMATION
  Report Type: Spontaneous
  Country: US (occurrence: None)
  Receive Date: 20150226
  Receipt Date: 20150226
  Transmission Date: 20150721
  Serious: No
  Sender: FDA-Public Use
  Company Number: TPA2010A02341

PATIENT
  Age: 8 Decade
  Sex: Female
  Weight: 90.72 kg

DRUGS (3)
  1. LASIX [Concomitant]
     Active Substance: FUROSEMIDE
  2. ULORIC [Suspect]
     Active Substance: FEBUXOSTAT
     Indication: GOUT
     Dosage: 40 MG QOD ALTERNATING WITH 80 MG, PER ORAL
     Route: 048
  3. POTASSIUM [Concomitant]
     Active Substance: POTASSIUM

REACTIONS (2)
  - Accidental overdose [None]
  - Creatinine renal clearance decreased [None]
